FAERS Safety Report 6662429-0 (Version None)
Quarter: 2010Q1

REPORT INFORMATION
  Report Type: 
  Country: None (occurrence: None)
  Receive Date: 20100329
  Receipt Date: 20100319
  Transmission Date: 20100710
  Serious: Yes (Other)
  Sender: FDA-Public Use
  Company Number: 20108454

PATIENT
  Sex: Female

DRUGS (1)
  1. LIORESAL [Suspect]
     Indication: MUSCLE SPASTICITY
     Dosage: 476.4 MCG, DAILY, INTRATHECAL
     Route: 037

REACTIONS (4)
  - CARDIAC FAILURE CONGESTIVE [None]
  - DEVICE ELECTRICAL FINDING [None]
  - OEDEMA [None]
  - UNEVALUABLE EVENT [None]
